FAERS Safety Report 23768692 (Version 1)
Quarter: 2024Q2

REPORT INFORMATION
  Report Type: Spontaneous
  Country: US (occurrence: None)
  Receive Date: 20240420
  Receipt Date: 20240420
  Transmission Date: 20240716
  Serious: Yes (Hospitalization)
  Sender: FDA-Public Use
  Company Number: None

PATIENT
  Age: 64 Year
  Sex: Male

DRUGS (1)
  1. CARVEDILOL [Suspect]
     Active Substance: CARVEDILOL
     Indication: Cardiac failure congestive
     Dosage: OTHER QUANTITY : 1;?FREQUENCY : DAILY;?
     Route: 048
     Dates: start: 20220929, end: 20230503

REACTIONS (3)
  - Bradycardia [None]
  - Therapy interrupted [None]
  - Aortic valve incompetence [None]

NARRATIVE: CASE EVENT DATE: 20230502
